FAERS Safety Report 7353410-7 (Version None)
Quarter: 2011Q1

REPORT INFORMATION
  Report Type: 
  Country: None (occurrence: None)
  Receive Date: 20110310
  Receipt Date: 20110310
  Transmission Date: 20110831
  Serious: Yes (Hospitalization)
  Sender: FDA-Public Use
  Company Number: None

PATIENT
  Sex: Male
  Weight: 98 kg

DRUGS (2)
  1. TACROLIMUS [Suspect]
     Indication: IMMUNOSUPPRESSION
     Dosage: 4 MG TWICE DAILY PO
     Route: 048
     Dates: start: 20110223, end: 20110303
  2. TACROLIMUS [Suspect]
     Indication: HEART TRANSPLANT
     Dosage: 4 MG TWICE DAILY PO
     Route: 048
     Dates: start: 20110223, end: 20110303

REACTIONS (2)
  - DRUG LEVEL CHANGED [None]
  - PRODUCT QUALITY ISSUE [None]
